FAERS Safety Report 19507366 (Version 1)
Quarter: 2021Q3

REPORT INFORMATION
  Report Type: Spontaneous
  Country: CN (occurrence: CN)
  Receive Date: 20210708
  Receipt Date: 20210708
  Transmission Date: 20211014
  Serious: Yes (Other)
  Sender: FDA-Public Use
  Company Number: CN-PFIZER INC-2021787936

PATIENT
  Age: 74 Year
  Sex: Female
  Weight: 60 kg

DRUGS (1)
  1. DALTEPARIN SODIUM [Suspect]
     Active Substance: DALTEPARIN SODIUM
     Indication: ANTICOAGULANT THERAPY
     Dosage: 5000 IU, 1X/DAY
     Route: 058
     Dates: start: 20210427, end: 20210511

REACTIONS (1)
  - Liver injury [Unknown]

NARRATIVE: CASE EVENT DATE: 20210511
